FAERS Safety Report 25914252 (Version 2)
Quarter: 2025Q4

REPORT INFORMATION
  Report Type: Spontaneous
  Country: GB (occurrence: GB)
  Receive Date: 20251013
  Receipt Date: 20251106
  Transmission Date: 20260118
  Serious: Yes (Death, Hospitalization, Other)
  Sender: GILEAD
  Company Number: GB-GILEAD-2025-0732331

PATIENT
  Age: 28 Year
  Sex: Female
  Weight: 74 kg

DRUGS (12)
  1. TECARTUS [Suspect]
     Active Substance: BREXUCABTAGENE AUTOLEUCEL
     Indication: Acute lymphocytic leukaemia
     Dosage: UNK
     Route: 042
     Dates: start: 20250924, end: 20250924
  2. ACYCLOVIR [Concomitant]
     Active Substance: ACYCLOVIR
     Dosage: 400 MG
     Route: 048
     Dates: start: 20250916
  3. ALLOPURINOL [Concomitant]
     Active Substance: ALLOPURINOL
     Dosage: 300 MG
     Route: 048
     Dates: start: 20250916
  4. MEROPENEM [Concomitant]
     Active Substance: MEROPENEM
  5. AMIKACIN [Concomitant]
     Active Substance: AMIKACIN
  6. GABAPENTIN [Concomitant]
     Active Substance: GABAPENTIN
  7. ITRACONAZOLE [Concomitant]
     Active Substance: ITRACONAZOLE
  8. OXYCODONE [Concomitant]
     Active Substance: OXYCODONE
  9. LANSOPRAZOLE [Concomitant]
     Active Substance: LANSOPRAZOLE
  10. MIRTAZAPINE [Concomitant]
     Active Substance: MIRTAZAPINE
  11. ONDANSETRON [Concomitant]
     Active Substance: ONDANSETRON
  12. COTRIMOXAZOLE [Concomitant]
     Active Substance: SULFAMETHOXAZOLE\TRIMETHOPRIM

REACTIONS (8)
  - Immune effector cell-associated neurotoxicity syndrome [Fatal]
  - Septic shock [Fatal]
  - Cardiac arrest [Fatal]
  - Brain oedema [Fatal]
  - Brain herniation [Fatal]
  - Cytokine release syndrome [Unknown]
  - Neutropenic sepsis [Unknown]
  - Escherichia bacteraemia [Unknown]

NARRATIVE: CASE EVENT DATE: 20251002
